FAERS Safety Report 21039445 (Version 1)
Quarter: 2022Q3

REPORT INFORMATION
  Report Type: Report from Study
  Country: US (occurrence: None)
  Receive Date: 20220704
  Receipt Date: 20220704
  Transmission Date: 20221027
  Serious: Yes (Other)
  Sender: FDA-Public Use
  Company Number: 2022A237381

PATIENT

DRUGS (1)
  1. CALQUENCE [Suspect]
     Active Substance: ACALABRUTINIB
     Route: 048

REACTIONS (11)
  - Cardiotoxicity [Unknown]
  - Toxicity to various agents [Unknown]
  - Thrombocytopenia [Unknown]
  - Disease progression [Unknown]
  - Haemorrhage [Unknown]
  - Anaemia [Unknown]
  - Arthralgia [Unknown]
  - Fatigue [Unknown]
  - Neutropenia [Unknown]
  - Headache [Unknown]
  - Drug ineffective [Unknown]
